FAERS Safety Report 5143482-2 (Version None)
Quarter: 2006Q4

REPORT INFORMATION
  Report Type: 
  Country: None (occurrence: None)
  Receive Date: 20061103
  Receipt Date: 20060815
  Transmission Date: 20070319
  Serious: Yes (Death)
  Sender: FDA-Public Use
  Company Number: AU-GLAXOSMITHKLINE-B0434568A

PATIENT
  Age: 65 Year
  Sex: Male

DRUGS (6)
  1. SERETIDE [Suspect]
     Indication: ASTHMA
     Route: 055
  2. PROPRANOLOL [Concomitant]
     Indication: BLOOD PRESSURE
     Route: 065
  3. PERINDOPRIL ERBUMINE [Concomitant]
     Indication: BLOOD PRESSURE
     Dosage: 8MG PER DAY
     Route: 048
  4. NATRILIX SR [Concomitant]
     Indication: BLOOD PRESSURE
     Dosage: 1.5MG PER DAY
     Route: 048
  5. SINEMET [Concomitant]
     Indication: PARKINSON'S DISEASE
  6. BRICANYL [Concomitant]
     Indication: ASTHMA

REACTIONS (3)
  - ASTHMA [None]
  - DEATH [None]
  - DYSPNOEA [None]
